FAERS Safety Report 11163214 (Version 10)
Quarter: 2017Q1

REPORT INFORMATION
  Report Type: Spontaneous
  Country: US (occurrence: US)
  Receive Date: 20150604
  Receipt Date: 20170116
  Transmission Date: 20170428
  Serious: Yes (Other)
  Sender: FDA-Public Use
  Company Number: US-SANOFI-AVENTIS-2013SA013160

PATIENT
  Age: 63 Year
  Sex: Female
  Weight: 56.69 kg

DRUGS (19)
  1. LANTUS [Suspect]
     Active Substance: INSULIN GLARGINE
     Indication: TYPE 1 DIABETES MELLITUS
     Route: 065
  2. LANTUS [Suspect]
     Active Substance: INSULIN GLARGINE
     Indication: TYPE 1 DIABETES MELLITUS
     Dosage: 12 UNITS, 5 UNITS IN EVENING
     Route: 065
     Dates: start: 2015
  3. APIDRA [Suspect]
     Active Substance: INSULIN GLULISINE
     Indication: TYPE 1 DIABETES MELLITUS
     Dosage: 3 U AS NEEDED
     Dates: start: 1996
  4. NOVOLOG [Suspect]
     Active Substance: INSULIN ASPART
     Indication: TYPE 1 DIABETES MELLITUS
  5. LANTUS [Suspect]
     Active Substance: INSULIN GLARGINE
     Indication: TYPE 1 DIABETES MELLITUS
     Dosage: 12 UNITS, 5 UNITS IN EVENING
     Route: 065
     Dates: start: 2015
  6. LANTUS [Suspect]
     Active Substance: INSULIN GLARGINE
     Indication: TYPE 1 DIABETES MELLITUS
     Dosage: 12 UNITS IN AM AND 6 UNITS IN PM
     Route: 065
     Dates: start: 20160208
  7. LEVEMIR [Suspect]
     Active Substance: INSULIN DETEMIR
     Indication: TYPE 1 DIABETES MELLITUS
  8. LEVOTHYROXINE. [Concomitant]
     Active Substance: LEVOTHYROXINE
     Indication: HYPOTHYROIDISM
     Dates: start: 1960
  9. LANTUS [Suspect]
     Active Substance: INSULIN GLARGINE
     Indication: TYPE 1 DIABETES MELLITUS
     Dosage: 10 U AM AND 6 U PM
     Route: 051
     Dates: start: 1996
  10. LANTUS [Suspect]
     Active Substance: INSULIN GLARGINE
     Indication: TYPE 1 DIABETES MELLITUS
     Dosage: 10 U AM AND 6 U PM
     Route: 051
     Dates: start: 1996
  11. LANTUS [Suspect]
     Active Substance: INSULIN GLARGINE
     Indication: TYPE 1 DIABETES MELLITUS
     Route: 065
  12. MULTIVITAMINS/MINERALS [Concomitant]
     Indication: NEUROPATHY PERIPHERAL
  13. BENADRYL [Concomitant]
     Active Substance: DIPHENHYDRAMINE HYDROCHLORIDE
     Dosage: DEPENDS ON SYMPTOMS TO TREAT NASAL DRIP
  14. LANTUS [Suspect]
     Active Substance: INSULIN GLARGINE
     Indication: TYPE 1 DIABETES MELLITUS
     Dosage: 10 U AM AND 6 U PM
     Route: 051
     Dates: start: 1996
  15. LANTUS [Suspect]
     Active Substance: INSULIN GLARGINE
     Indication: TYPE 1 DIABETES MELLITUS
     Dosage: 12 UNITS, 5 UNITS IN EVENING
     Route: 065
     Dates: start: 2015
  16. LANTUS [Suspect]
     Active Substance: INSULIN GLARGINE
     Indication: TYPE 1 DIABETES MELLITUS
     Route: 065
  17. LANTUS [Suspect]
     Active Substance: INSULIN GLARGINE
     Indication: TYPE 1 DIABETES MELLITUS
     Dosage: 12 UNITS IN AM AND 6 UNITS IN PM
     Route: 065
     Dates: start: 20160208
  18. LANTUS [Suspect]
     Active Substance: INSULIN GLARGINE
     Indication: TYPE 1 DIABETES MELLITUS
     Dosage: 12 UNITS IN AM AND 6 UNITS IN PM
     Route: 065
     Dates: start: 20120425
  19. CURCUMIN [Concomitant]
     Active Substance: CURCUMIN
     Indication: DEMENTIA ALZHEIMER^S TYPE

REACTIONS (19)
  - Impaired driving ability [Not Recovered/Not Resolved]
  - Glycosylated haemoglobin increased [Unknown]
  - Product use issue [Unknown]
  - Therapeutic response decreased [Unknown]
  - Hypoacusis [Unknown]
  - Blood glucose increased [Not Recovered/Not Resolved]
  - Hypoglycaemia [Not Recovered/Not Resolved]
  - Flatulence [Not Recovered/Not Resolved]
  - Fall [Unknown]
  - Insulin resistance [Unknown]
  - Impaired work ability [Not Recovered/Not Resolved]
  - Blood glucose increased [Not Recovered/Not Resolved]
  - Drug ineffective [Unknown]
  - Unevaluable event [Unknown]
  - Foot fracture [Unknown]
  - Shock hypoglycaemic [Not Recovered/Not Resolved]
  - Rash [Unknown]
  - Product use issue [Unknown]
  - Weight increased [Unknown]

NARRATIVE: CASE EVENT DATE: 20121002
